FAERS Safety Report 7755695-1 (Version None)
Quarter: 2011Q3

REPORT INFORMATION
  Report Type: 
  Country: None (occurrence: None)
  Receive Date: 20110916
  Receipt Date: 20110909
  Transmission Date: 20111222
  Serious: Yes (Death, Hospitalization, Disabling)
  Sender: FDA-Public Use
  Company Number: JP-JNJFOC-20100210620

PATIENT
  Sex: Female
  Weight: 44 kg

DRUGS (12)
  1. NICORANDIL [Concomitant]
     Indication: ANGINA PECTORIS
     Route: 048
     Dates: start: 20030101
  2. WARFARIN SODIUM [Concomitant]
     Indication: ANGINA PECTORIS
     Route: 048
     Dates: start: 20030101
  3. PRIMPERAN TAB [Concomitant]
     Indication: VOMITING
     Route: 048
     Dates: start: 20090721, end: 20090725
  4. DAI-KENCHU-TO [Concomitant]
     Indication: INTESTINAL OBSTRUCTION
     Route: 048
     Dates: start: 20090807
  5. DOXORUBICIN HCL [Suspect]
     Indication: OVARIAN CANCER RECURRENT
     Dosage: COURSE 1
     Route: 042
     Dates: start: 20090714, end: 20090714
  6. ASPIRIN [Concomitant]
     Indication: ANGINA PECTORIS
     Route: 048
     Dates: start: 20030101
  7. BETAMETHASONE [Concomitant]
     Indication: VOMITING
     Route: 048
     Dates: start: 20090721, end: 20090725
  8. FAMOTIDINE [Concomitant]
     Indication: INTESTINAL OBSTRUCTION
     Route: 048
     Dates: start: 20090730
  9. AZUNOL [Concomitant]
     Indication: PROPHYLAXIS
     Route: 049
     Dates: start: 20090714
  10. GRAN [Concomitant]
     Indication: GRANULOCYTE COUNT DECREASED
     Route: 058
     Dates: start: 20090906, end: 20090906
  11. DOXORUBICIN HCL [Suspect]
     Dosage: COURSE 2
     Route: 042
     Dates: start: 20090824, end: 20090824
  12. DILTIAZEM HCL [Concomitant]
     Indication: ANGINA PECTORIS
     Route: 048
     Dates: start: 20030101

REACTIONS (3)
  - INTESTINAL OBSTRUCTION [None]
  - GRANULOCYTOPENIA [None]
  - OVARIAN CANCER RECURRENT [None]
